FAERS Safety Report 24097044 (Version 1)
Quarter: 2024Q3

REPORT INFORMATION
  Report Type: Spontaneous
  Country: US (occurrence: US)
  Receive Date: 20240716
  Receipt Date: 20240716
  Transmission Date: 20241017
  Serious: No
  Sender: ELI LILLY AND CO
  Company Number: US-ELI_LILLY_AND_COMPANY-US202407008522

PATIENT
  Age: 67 Year
  Sex: Female

DRUGS (8)
  1. ZEPBOUND [Suspect]
     Active Substance: TIRZEPATIDE
     Indication: Weight control
     Dosage: 2.5 MG, UNKNOWN
     Route: 065
     Dates: start: 20240501, end: 20240630
  2. ZEPBOUND [Suspect]
     Active Substance: TIRZEPATIDE
     Indication: Weight control
     Dosage: 2.5 MG, UNKNOWN
     Route: 065
     Dates: start: 20240501, end: 20240630
  3. ZEPBOUND [Suspect]
     Active Substance: TIRZEPATIDE
     Indication: Weight control
     Dosage: 2.5 MG, UNKNOWN
     Route: 065
     Dates: start: 20240501, end: 20240630
  4. ZEPBOUND [Suspect]
     Active Substance: TIRZEPATIDE
     Indication: Weight control
     Dosage: 2.5 MG, UNKNOWN
     Route: 065
     Dates: start: 20240501, end: 20240630
  5. ZEPBOUND [Suspect]
     Active Substance: TIRZEPATIDE
     Indication: Renal impairment
  6. ZEPBOUND [Suspect]
     Active Substance: TIRZEPATIDE
     Indication: Renal impairment
  7. ZEPBOUND [Suspect]
     Active Substance: TIRZEPATIDE
     Indication: Renal impairment
  8. ZEPBOUND [Suspect]
     Active Substance: TIRZEPATIDE
     Indication: Renal impairment

REACTIONS (2)
  - Vomiting [Recovered/Resolved]
  - Nausea [Recovered/Resolved]

NARRATIVE: CASE EVENT DATE: 20240501
